FAERS Safety Report 5390140-5 (Version None)
Quarter: 2007Q3

REPORT INFORMATION
  Report Type: 
  Country: None (occurrence: None)
  Receive Date: 20070716
  Receipt Date: 20070716
  Transmission Date: 20080115
  Serious: Yes (Death)
  Sender: FDA-Public Use
  Company Number: None

PATIENT
  Age: 37 Year
  Sex: Male
  Weight: 90.7194 kg

DRUGS (1)
  1. PROZAC [Suspect]
     Indication: DEPRESSION
     Dosage: 20 MG 1XDAY CUTANEOUS
     Route: 003
     Dates: start: 20070502, end: 20070513

REACTIONS (4)
  - ABNORMAL BEHAVIOUR [None]
  - ASPHYXIA [None]
  - COMPLETED SUICIDE [None]
  - DEPRESSION [None]
